FAERS Safety Report 6377187-7 (Version None)
Quarter: 2009Q3

REPORT INFORMATION
  Report Type: 
  Country: None (occurrence: None)
  Receive Date: 20090925
  Receipt Date: 20090916
  Transmission Date: 20100115
  Serious: Yes (Hospitalization)
  Sender: FDA-Public Use
  Company Number: A0731243A

PATIENT
  Age: 60 Year
  Sex: Female
  Weight: 56.8 kg

DRUGS (12)
  1. AVANDIA [Suspect]
     Dosage: 4MG TWICE PER DAY
     Route: 048
     Dates: end: 20070810
  2. AVANDAMET [Suspect]
     Route: 048
  3. GLUCOPHAGE [Concomitant]
     Dates: start: 19980101
  4. METFORMIN [Concomitant]
     Dates: start: 19980101
  5. DIABETA [Concomitant]
     Dates: start: 20060101, end: 20070101
  6. ATARAX [Concomitant]
  7. SYNTHROID [Concomitant]
  8. ZANAFLEX [Concomitant]
  9. LORTAB [Concomitant]
  10. LISINOPRIL [Concomitant]
  11. TOPAMAX [Concomitant]
  12. ESTRADIOL [Concomitant]

REACTIONS (3)
  - CARDIOMYOPATHY [None]
  - MITRAL VALVE PROLAPSE [None]
  - MYOCARDIAL INFARCTION [None]
